FAERS Safety Report 9346084 (Version 2)
Quarter: 2013Q2

REPORT INFORMATION
  Report Type: Report from Study
  Country: CA (occurrence: CA)
  Receive Date: 20130613
  Receipt Date: 20130613
  Transmission Date: 20140414
  Serious: Yes (Hospitalization, Other)
  Sender: FDA-Public Use
  Company Number: CA-ROCHE-1187523

PATIENT
  Age: 49 Year
  Sex: Female

DRUGS (7)
  1. PEGASYS [Suspect]
     Indication: HEPATITIS C
     Route: 058
     Dates: start: 20130201
  2. CELEXA [Suspect]
     Indication: HEPATITIS C
     Route: 065
     Dates: end: 20130201
  3. COPEGUS [Suspect]
     Indication: HEPATITIS C
     Route: 048
     Dates: start: 20130201
  4. AMLODIPINE [Concomitant]
  5. VENTOLIN [Concomitant]
  6. NEXIUM [Concomitant]
  7. ADVAIR [Concomitant]

REACTIONS (6)
  - Vomiting [Unknown]
  - Hypertension [Not Recovered/Not Resolved]
  - Hepatitis B [Not Recovered/Not Resolved]
  - Pain [Not Recovered/Not Resolved]
  - Swelling [Not Recovered/Not Resolved]
  - Rash [Not Recovered/Not Resolved]
